FAERS Safety Report 23839926 (Version 1)
Quarter: 2024Q2

REPORT INFORMATION
  Report Type: Report from Study
  Country: US (occurrence: US)
  Receive Date: 20240510
  Receipt Date: 20240510
  Transmission Date: 20240716
  Serious: Yes (Hospitalization)
  Sender: FDA-Public Use
  Company Number: US-SANDOZ-SDZ2023US027378

PATIENT
  Age: 26 Year
  Sex: Female
  Weight: 55.329 kg

DRUGS (8)
  1. TREPROSTINIL [Suspect]
     Active Substance: TREPROSTINIL
     Dosage: 348 NG/KG/MIN, CONT
     Route: 042
     Dates: start: 20200428
  2. TREPROSTINIL [Suspect]
     Active Substance: TREPROSTINIL
     Dosage: 348 NG/KG/MIN, CONT
     Route: 042
     Dates: start: 20200428
  3. TREPROSTINIL [Suspect]
     Active Substance: TREPROSTINIL
     Indication: Pulmonary arterial hypertension
     Dosage: 348 NG/KG/MIN, CONT
     Route: 042
     Dates: start: 20200428
  4. TREPROSTINIL [Suspect]
     Active Substance: TREPROSTINIL
     Dosage: 348 NG/KG/MIN, CONT
     Route: 042
     Dates: start: 20200428
  5. TREPROSTINIL [Suspect]
     Active Substance: TREPROSTINIL
     Dosage: 348 NG/KG/MIN, CONT
     Route: 042
     Dates: start: 20200428
  6. AMBRISENTAN [Concomitant]
     Active Substance: AMBRISENTAN
     Indication: Product used for unknown indication
     Dosage: UNK
     Route: 065
  7. REVATIO [Concomitant]
     Active Substance: SILDENAFIL CITRATE
     Indication: Product used for unknown indication
     Dosage: UNK
     Route: 065
  8. WARFARIN [Concomitant]
     Active Substance: WARFARIN
     Indication: Product used for unknown indication
     Dosage: UNK
     Route: 065

REACTIONS (7)
  - Catheter site irritation [Unknown]
  - Malaise [Not Recovered/Not Resolved]
  - Sleep disorder [Unknown]
  - Nasopharyngitis [Unknown]
  - Urinary tract infection [Unknown]
  - Headache [Unknown]
  - Feeling abnormal [Unknown]

NARRATIVE: CASE EVENT DATE: 20200428
